FAERS Safety Report 16893732 (Version 1)
Quarter: 2019Q4

REPORT INFORMATION
  Report Type: Spontaneous
  Country: US (occurrence: US)
  Receive Date: 20190813
  Receipt Date: 20190813
  Transmission Date: 20200122
  Serious: No
  Sender: FDA-Public Use
  Company Number: None

PATIENT
  Sex: Female

DRUGS (1)
  1. AMOXICILLIN. [Suspect]
     Active Substance: AMOXICILLIN

REACTIONS (5)
  - Insomnia [None]
  - Extra dose administered [None]
  - Restlessness [None]
  - Hyperhidrosis [None]
  - Inappropriate schedule of product administration [None]

NARRATIVE: CASE EVENT DATE: 2019
